FAERS Safety Report 15357702 (Version 12)
Quarter: 2019Q1

REPORT INFORMATION
  Report Type: Report from Study
  Country: US (occurrence: US)
  Receive Date: 20180906
  Receipt Date: 20190312
  Transmission Date: 20190417
  Serious: Yes (Hospitalization, Disabling, Other)
  Sender: FDA-Public Use
  Company Number: US-ACTELION-A-US2018-175843

PATIENT
  Age: 63 Year
  Sex: Female

DRUGS (46)
  1. UPTRAVI [Suspect]
     Active Substance: SELEXIPAG
     Dosage: 800 MCG, BID
     Route: 048
  2. HYDROXYCHLOROQUINE [Concomitant]
     Active Substance: HYDROXYCHLOROQUINE
     Dosage: 200 MG, UNK
  3. ALBUTEROL. [Concomitant]
     Active Substance: ALBUTEROL
     Dosage: 0.63 MG/3
     Route: 055
  4. METOLAZONE. [Concomitant]
     Active Substance: METOLAZONE
     Dosage: 2.5 MG, UNK
  5. POTASSIUM CHLORIDE. [Concomitant]
     Active Substance: POTASSIUM CHLORIDE
     Dosage: 20 MEQ, UNK
  6. IPRATROPIUM BROMIDE AND ALBUTEROL SULFATE [Concomitant]
     Active Substance: ALBUTEROL SULFATE\IPRATROPIUM BROMIDE
  7. PREDNISONE. [Concomitant]
     Active Substance: PREDNISONE
     Dosage: 5 MG
  8. UPTRAVI [Suspect]
     Active Substance: SELEXIPAG
     Indication: PULMONARY ARTERIAL HYPERTENSION
     Dosage: 1000 MCG, BID
     Route: 048
     Dates: start: 20180629, end: 20190205
  9. METFORMIN [Concomitant]
     Active Substance: METFORMIN HYDROCHLORIDE
  10. LEFLUNOMIDE. [Concomitant]
     Active Substance: LEFLUNOMIDE
     Dosage: 20 MG, UNK
  11. VITAMIN D [Concomitant]
     Active Substance: CHOLECALCIFEROL
     Dosage: 50000 U, UNK
  12. ARAVA [Concomitant]
     Active Substance: LEFLUNOMIDE
     Dosage: 20 MG, UNK
  13. SPIRIVA [Concomitant]
     Active Substance: TIOTROPIUM BROMIDE MONOHYDRATE
     Dosage: 1.25 MCG
     Route: 055
  14. FLONASE [Concomitant]
     Active Substance: FLUTICASONE PROPIONATE
     Dosage: 50 MCG, UNK
  15. VENTOLIN [Concomitant]
     Active Substance: ALBUTEROL SULFATE
  16. DICYCLOMINE [Concomitant]
     Active Substance: DICYCLOMINE HYDROCHLORIDE
     Dosage: 10 MG
  17. TIZANIDINE. [Concomitant]
     Active Substance: TIZANIDINE
     Dosage: 2 MG
  18. UPTRAVI [Suspect]
     Active Substance: SELEXIPAG
     Dosage: 200 MCG, BID
     Route: 048
     Dates: start: 20180629
  19. UPTRAVI [Suspect]
     Active Substance: SELEXIPAG
     Dosage: 400 MCG, BID
     Route: 048
  20. UPTRAVI [Suspect]
     Active Substance: SELEXIPAG
     Dosage: 1000 MCG QAM, 800 MCG QPM
     Route: 048
  21. LEVOTHYROXINE. [Concomitant]
     Active Substance: LEVOTHYROXINE
     Dosage: 50 MCG, UNK
  22. ATORVASTATIN [Concomitant]
     Active Substance: ATORVASTATIN
     Dosage: 40 MG, UNK
  23. ONGLYZA [Concomitant]
     Active Substance: SAXAGLIPTIN HYDROCHLORIDE
     Dosage: 2.5 MG, UNK
  24. BISOPROLOL [Concomitant]
     Active Substance: BISOPROLOL
     Dosage: 5 MG
  25. ELIQUIS [Concomitant]
     Active Substance: APIXABAN
     Dosage: 2.5 MG, UNK
  26. FLUTICASONE. [Concomitant]
     Active Substance: FLUTICASONE
     Dosage: 50 MCG
  27. BENADRYL [Concomitant]
     Active Substance: DIPHENHYDRAMINE HYDROCHLORIDE
     Dosage: 25 MG, UNK
  28. MAGNESIUM [Concomitant]
     Active Substance: MAGNESIUM
     Dosage: 30 MG, UNK
  29. DIGOXIN. [Concomitant]
     Active Substance: DIGOXIN
     Dosage: 0.125 MG, UNK
  30. PANTOPRAZOLE [Concomitant]
     Active Substance: PANTOPRAZOLE
     Dosage: 40 MG
  31. UPTRAVI [Suspect]
     Active Substance: SELEXIPAG
     Dosage: 400 MCG, QAM; 200 MCG QPM
     Route: 048
  32. OPSUMIT [Suspect]
     Active Substance: MACITENTAN
     Indication: PULMONARY ARTERIAL HYPERTENSION
     Dosage: 10 MG, QD
     Route: 048
     Dates: start: 20180531
  33. SILDENAFIL. [Concomitant]
     Active Substance: SILDENAFIL
     Dosage: 20 UNK
  34. CENTRUM [Concomitant]
     Active Substance: VITAMINS
  35. ENTRESTO [Concomitant]
     Active Substance: SACUBITRIL\VALSARTAN
     Dosage: 24-26 MG
  36. CYTOTEC [Concomitant]
     Active Substance: MISOPROSTOL
     Dosage: 200 MCG
  37. PREVACID [Concomitant]
     Active Substance: LANSOPRAZOLE
     Dosage: 30 MG
  38. MIDODRINE [Concomitant]
     Active Substance: MIDODRINE
     Dosage: 2.5 MG, UNK
  39. ALDACTONE [Concomitant]
     Active Substance: SPIRONOLACTONE
     Dosage: 25 MG, UNK
  40. CENTRUM SILVER [Concomitant]
     Active Substance: MINERALS\VITAMINS
  41. PERMETHRIN. [Concomitant]
     Active Substance: PERMETHRIN
     Dosage: 5 %, UNK
  42. NAPROSYN [Concomitant]
     Active Substance: NAPROXEN
     Dosage: 500 MG
  43. SPIRONOLACTONE. [Concomitant]
     Active Substance: SPIRONOLACTONE
     Dosage: 25 MG
  44. TORSEMIDE. [Concomitant]
     Active Substance: TORSEMIDE
     Dosage: 20 MG, UNK
  45. SILDENAFIL. [Concomitant]
     Active Substance: SILDENAFIL
     Dosage: 100 MG, UNK
  46. CITALOPRAM [Concomitant]
     Active Substance: CITALOPRAM HYDROBROMIDE
     Dosage: 20 MG, UNK

REACTIONS (25)
  - Loss of consciousness [Unknown]
  - Dyspnoea [Unknown]
  - Insomnia [Unknown]
  - Product dose omission [Recovered/Resolved]
  - Haemoglobin decreased [Not Recovered/Not Resolved]
  - Hypotension [Unknown]
  - Palpitations [Unknown]
  - Drug ineffective [Unknown]
  - Pain [Unknown]
  - Cardiac failure [Unknown]
  - Rectal haemorrhage [Unknown]
  - Cough [Unknown]
  - Internal haemorrhage [Not Recovered/Not Resolved]
  - Gastritis [Not Recovered/Not Resolved]
  - Oedema peripheral [Unknown]
  - Abdominal discomfort [Unknown]
  - Oxygen consumption increased [Unknown]
  - Oxygen saturation decreased [Unknown]
  - Pain in extremity [Unknown]
  - Nasal congestion [Not Recovered/Not Resolved]
  - Diarrhoea [Unknown]
  - General physical condition decreased [Unknown]
  - Hospice care [Recovered/Resolved]
  - Pain in jaw [Unknown]
  - Malaise [Recovered/Resolved]

NARRATIVE: CASE EVENT DATE: 20180715
